FAERS Safety Report 6490200-1 (Version None)
Quarter: 2009Q4

REPORT INFORMATION
  Report Type: 
  Country: None (occurrence: None)
  Receive Date: 20091211
  Receipt Date: 20091203
  Transmission Date: 20100525
  Serious: Yes (Other)
  Sender: FDA-Public Use
  Company Number: DE-ABBOTT-09P-062-0585939-00

PATIENT
  Sex: Female
  Weight: 60 kg

DRUGS (1)
  1. SEVORANE [Suspect]
     Indication: DRUG USE FOR UNKNOWN INDICATION

REACTIONS (6)
  - ANAPHYLACTIC REACTION [None]
  - FLUSHING [None]
  - PRURITUS [None]
  - RESPIRATORY DISORDER [None]
  - URTICARIA [None]
  - WHEEZING [None]
